FAERS Safety Report 25460944 (Version 1)
Quarter: 2025Q2

REPORT INFORMATION
  Report Type: Spontaneous
  Country: FR (occurrence: FR)
  Receive Date: 20250620
  Receipt Date: 20250620
  Transmission Date: 20250717
  Serious: Yes (Hospitalization)
  Sender: ZAMBON
  Company Number: FR-ZAMBON SWITZERLAND LTD.-2025-ZAM-FR000017

PATIENT

DRUGS (5)
  1. FOSFOMYCIN TROMETHAMINE [Suspect]
     Active Substance: FOSFOMYCIN TROMETHAMINE
     Indication: Cystitis
     Route: 048
     Dates: start: 202410, end: 202410
  2. FOSFOMYCIN TROMETHAMINE [Suspect]
     Active Substance: FOSFOMYCIN TROMETHAMINE
     Route: 048
     Dates: start: 20241112, end: 20241112
  3. METRONIDAZOLE [Suspect]
     Active Substance: METRONIDAZOLE
     Indication: Clostridium difficile colitis
     Route: 048
     Dates: start: 20241103, end: 20241113
  4. SECNIDAZOLE [Suspect]
     Active Substance: SECNIDAZOLE
     Indication: Vulvovaginal mycotic infection
     Route: 048
     Dates: start: 20241030, end: 20241104
  5. Polygynax [Concomitant]
     Indication: Bacterial vaginosis
     Route: 067
     Dates: start: 20241030, end: 20241104

REACTIONS (2)
  - Agranulocytosis [Recovered/Resolved]
  - Product prescribing error [Unknown]

NARRATIVE: CASE EVENT DATE: 20241031
